FAERS Safety Report 18332273 (Version 2)
Quarter: 2020Q4

REPORT INFORMATION
  Report Type: Spontaneous
  Country: US (occurrence: US)
  Receive Date: 20200930
  Receipt Date: 20201002
  Transmission Date: 20210113
  Serious: Yes (Life-Threatening)
  Sender: FDA-Public Use
  Company Number: US-PFIZER INC-2020375538

PATIENT
  Sex: Female

DRUGS (2)
  1. PRISTIQ EXTENDED-RELEASE [Suspect]
     Active Substance: DESVENLAFAXINE SUCCINATE
     Dosage: 50 MG [50MG FOR TWO WEEKS THEN 100MG DAILY]
  2. PRISTIQ EXTENDED-RELEASE [Suspect]
     Active Substance: DESVENLAFAXINE SUCCINATE
     Dosage: 100 MG, DAILY [50MG FOR TWO WEEKS THEN 100MG DAILY]

REACTIONS (8)
  - Inflammation [Unknown]
  - Inflammatory marker increased [Unknown]
  - Anger [Unknown]
  - Agitation [Unknown]
  - Myalgia [Unknown]
  - Malaise [Unknown]
  - Pain [Unknown]
  - Screaming [Unknown]
